FAERS Safety Report 10625486 (Version 1)
Quarter: 2014Q4

REPORT INFORMATION
  Report Type: Spontaneous
  Country: US (occurrence: None)
  Receive Date: 20141121
  Receipt Date: 20141121
  Transmission Date: 20150529
  Serious: Yes (Hospitalization)
  Sender: FDA-Public Use
  Company Number: AUR-APL-2014-10051

PATIENT
  Age: 67 Year
  Sex: Female
  Weight: 97 kg

DRUGS (12)
  1. BIOTIN [Concomitant]
     Active Substance: BIOTIN
  2. GABAPENIN [Concomitant]
  3. MELOXICAM. [Suspect]
     Active Substance: MELOXICAM
     Indication: OSTEOARTHRITIS
     Route: 048
     Dates: start: 20131017, end: 20131029
  4. NEXIUM I.V. [Concomitant]
     Active Substance: ESOMEPRAZOLE SODIUM
  5. PRAVASTATIN [Concomitant]
     Active Substance: PRAVASTATIN\PRAVASTATIN SODIUM
  6. LEVOTHYROXINE (LEVOTHYROXINE SODIUM) [Concomitant]
  7. ASPIRIN (ACETYLSALICYLIC ACID) [Concomitant]
     Active Substance: ASPIRIN
  8. DIOVAN HCT (HYDROCHLOROTHIAZIDE, VALSARTAN) [Concomitant]
  9. FLECAINIDE [Concomitant]
     Active Substance: FLECAINIDE
  10. ROPINIROLE. [Concomitant]
     Active Substance: ROPINIROLE
  11. LORTAB (HYDROCODONE BITARTATE, PARACETAMOL) [Concomitant]
  12. XANAX [Concomitant]
     Active Substance: ALPRAZOLAM

REACTIONS (1)
  - Chest pain [None]

NARRATIVE: CASE EVENT DATE: 20131030
